FAERS Safety Report 24723851 (Version 5)
Quarter: 2025Q2

REPORT INFORMATION
  Report Type: Spontaneous
  Country: JP (occurrence: JP)
  Receive Date: 20241211
  Receipt Date: 20250502
  Transmission Date: 20250716
  Serious: Yes (Hospitalization)
  Sender: SYMOGEN
  Company Number: JP-PARTNER THERAPEUTICS-2024PTX04087

PATIENT
  Age: 72 Year
  Sex: Male

DRUGS (1)
  1. SARGRAMOSTIM [Suspect]
     Active Substance: SARGRAMOSTIM
     Indication: Alveolar proteinosis
     Dosage: 125 ?G, 2X/DAY (PER 12 HR)
     Dates: start: 20241025, end: 20241112

REACTIONS (5)
  - Pneumothorax [Recovered/Resolved]
  - Pneumomediastinum [Recovered/Resolved]
  - COVID-19 [Recovering/Resolving]
  - Pneumomediastinum [Recovered/Resolved]
  - Pneumothorax [Recovered/Resolved]

NARRATIVE: CASE EVENT DATE: 20241112
